FAERS Safety Report 14380027 (Version 1)
Quarter: 2018Q1

REPORT INFORMATION
  Report Type: Report from Study
  Country: US (occurrence: US)
  Receive Date: 20180112
  Receipt Date: 20180112
  Transmission Date: 20180509
  Serious: No
  Sender: FDA-Public Use
  Company Number: US-PUMA BIOTECHNOLOGY, LTD.-2017US012756

PATIENT

DRUGS (4)
  1. LOPERAMIDE [Concomitant]
     Active Substance: LOPERAMIDE
     Indication: DIARRHOEA
     Dosage: UNK
  2. TAMOXIFEN CITRATE. [Concomitant]
     Active Substance: TAMOXIFEN CITRATE
     Indication: PRODUCT USED FOR UNKNOWN INDICATION
  3. NERLYNX [Suspect]
     Active Substance: NERATINIB
     Indication: BREAST CANCER FEMALE
     Dosage: UNK UNK, DAILY
     Route: 048
     Dates: start: 20170908
  4. NERLYNX [Suspect]
     Active Substance: NERATINIB
     Dosage: 3 DF, DAILY
     Route: 048
     Dates: start: 20170925

REACTIONS (5)
  - Diarrhoea [Unknown]
  - Nausea [Unknown]
  - Oral pain [Recovered/Resolved]
  - Cystitis [Recovered/Resolved]
  - Vomiting [Recovered/Resolved]

NARRATIVE: CASE EVENT DATE: 20170910
